FAERS Safety Report 26156962 (Version 1)
Quarter: 2025Q4

REPORT INFORMATION
  Report Type: Spontaneous
  Country: US (occurrence: None)
  Receive Date: 20251212
  Receipt Date: 20251212
  Transmission Date: 20260118
  Serious: Yes (Life-Threatening, Hospitalization)
  Sender: FDA-CTU
  Company Number: None

PATIENT
  Age: 30 Year
  Sex: Female
  Weight: 85.5 kg

DRUGS (4)
  1. ZEPBOUND [Suspect]
     Active Substance: TIRZEPATIDE
     Indication: Sleep apnoea syndrome
     Dosage: OTHER QUANTITY : 1 INJECTION(S);?OTHER FREQUENCY : 1 WEEKLY;
     Route: 058
     Dates: start: 20251207, end: 20251207
  2. ZEPBOUND [Suspect]
     Active Substance: TIRZEPATIDE
     Indication: Weight decreased
  3. Sertraline 50mg oral 1x day [Concomitant]
  4. Blisovi 1/20 fe oral 1x day [Concomitant]

REACTIONS (14)
  - Abdominal pain [None]
  - Pruritus [None]
  - Pruritus [None]
  - Cold sweat [None]
  - Vomiting [None]
  - Blood pressure increased [None]
  - Hypophagia [None]
  - Panic reaction [None]
  - Rash pruritic [None]
  - Blister [None]
  - Anaphylactic shock [None]
  - Drug hypersensitivity [None]
  - White blood cell count increased [None]
  - Therapy cessation [None]

NARRATIVE: CASE EVENT DATE: 20251209
